FAERS Safety Report 21814603 (Version 2)
Quarter: 2025Q3

REPORT INFORMATION
  Report Type: Spontaneous
  Country: EU (occurrence: EU)
  Receive Date: 20230104
  Receipt Date: 20250901
  Transmission Date: 20251020
  Serious: Yes (Hospitalization, Other)
  Sender: AUROBINDO
  Company Number: EU-SA-2022SA507904

PATIENT
  Age: 81 Year
  Sex: Male

DRUGS (1)
  1. AMIODARONE [Suspect]
     Active Substance: AMIODARONE
     Indication: Prophylaxis
     Route: 065

REACTIONS (13)
  - Hyponatraemia [Recovering/Resolving]
  - Tremor [Recovering/Resolving]
  - Myxoedema [Recovering/Resolving]
  - Asthenia [Recovering/Resolving]
  - Hypothyroidism [Recovering/Resolving]
  - Dysarthria [Recovering/Resolving]
  - Hyperkalaemia [Recovering/Resolving]
  - Rhythm idioventricular [Recovering/Resolving]
  - Hypotension [Recovering/Resolving]
  - Metabolic acidosis [Recovering/Resolving]
  - Bradycardia [Recovering/Resolving]
  - Hypothermia [Recovering/Resolving]
  - Acute kidney injury [Recovering/Resolving]
